FAERS Safety Report 5750388-4 (Version None)
Quarter: 2008Q2

REPORT INFORMATION
  Report Type: 
  Country: None (occurrence: None)
  Receive Date: 20080523
  Receipt Date: 20080523
  Transmission Date: 20081010
  Serious: Yes (Other)
  Sender: FDA-Public Use
  Company Number: None

PATIENT
  Age: 81 Year
  Sex: Male
  Weight: 89.8122 kg

DRUGS (1)
  1. SUBOXONE [Suspect]
     Indication: DEPRESSION
     Dosage: 0.5 MILLIGRAMS ONCE

REACTIONS (7)
  - ALTERED STATE OF CONSCIOUSNESS [None]
  - BALANCE DISORDER [None]
  - DRUG TOXICITY [None]
  - GAIT DISTURBANCE [None]
  - IMMOBILE [None]
  - VOMITING [None]
  - WRONG TECHNIQUE IN DRUG USAGE PROCESS [None]
